FAERS Safety Report 9782861 (Version 1)
Quarter: 2013Q4

REPORT INFORMATION
  Report Type: Report from Study
  Country: US (occurrence: US)
  Receive Date: 20131226
  Receipt Date: 20131226
  Transmission Date: 20140711
  Serious: No
  Sender: FDA-Public Use
  Company Number: US-ABBVIE-13P-163-1059200-00

PATIENT
  Age: 72 Year
  Sex: Male
  Weight: 56.3 kg

DRUGS (6)
  1. LUPRON DEPOT [Suspect]
     Indication: PROSTATE CANCER
     Route: 030
     Dates: start: 201203
  2. ATENOLOL [Concomitant]
     Indication: HYPERTENSION
  3. RANITIDINE [Concomitant]
     Indication: GASTROOESOPHAGEAL REFLUX DISEASE
  4. SIMVASTATIN [Concomitant]
     Indication: BLOOD CHOLESTEROL INCREASED
  5. ALENDRONATA SODIUM [Concomitant]
     Indication: MINERAL SUPPLEMENTATION
  6. CALTRATE [Concomitant]
     Indication: MINERAL SUPPLEMENTATION

REACTIONS (3)
  - Injection site rash [Not Recovered/Not Resolved]
  - Injection site erythema [Not Recovered/Not Resolved]
  - Injection site pain [Not Recovered/Not Resolved]
